FAERS Safety Report 25493975 (Version 1)
Quarter: 2025Q2

REPORT INFORMATION
  Report Type: Report from Study
  Country: US (occurrence: US)
  Receive Date: 20250630
  Receipt Date: 20250630
  Transmission Date: 20250717
  Serious: No
  Sender: ACADIA PHARMACEUTICALS
  Company Number: US-ACADIA PHARMACEUTICALS INC.-ACA-2025-PIM-007568

PATIENT
  Age: 67 Year
  Sex: Male

DRUGS (24)
  1. NUPLAZID [Suspect]
     Active Substance: PIMAVANSERIN TARTRATE
     Indication: Parkinson^s disease
     Dosage: 10 MILLIGRAM, QD
     Route: 048
     Dates: start: 20250509
  2. ALBUTEROL [Concomitant]
     Active Substance: ALBUTEROL
  3. ATORVASTATIN [Concomitant]
     Active Substance: ATORVASTATIN
  4. BUPROPION [Concomitant]
     Active Substance: BUPROPION
  5. CARBIDOPA\LEVODOPA [Concomitant]
     Active Substance: CARBIDOPA\LEVODOPA
  6. CHLORTHALIDONE [Concomitant]
     Active Substance: CHLORTHALIDONE
  7. DONEPEZIL [Concomitant]
     Active Substance: DONEPEZIL
  8. FENOFIBRATE [Concomitant]
     Active Substance: FENOFIBRATE
  9. FLOMAX [Concomitant]
     Active Substance: TAMSULOSIN HYDROCHLORIDE
  10. FLONASE [Concomitant]
     Active Substance: FLUTICASONE PROPIONATE
  11. JARDIANCE [Concomitant]
     Active Substance: EMPAGLIFLOZIN
  12. LAMICTAL [Concomitant]
     Active Substance: LAMOTRIGINE
  13. LISINOPRIL [Concomitant]
     Active Substance: LISINOPRIL
  14. LORATADINE [Concomitant]
     Active Substance: LORATADINE
  15. MELATONIN [Concomitant]
     Active Substance: MELATONIN
  16. MEMANTINE [Concomitant]
     Active Substance: MEMANTINE
  17. METFORMIN [Concomitant]
     Active Substance: METFORMIN HYDROCHLORIDE
  18. MONTELUKAST [Concomitant]
     Active Substance: MONTELUKAST
  19. NEUPRO [Concomitant]
     Active Substance: ROTIGOTINE
  20. OZEMPIC [Concomitant]
     Active Substance: SEMAGLUTIDE
  21. ROFLUMILAST [Concomitant]
     Active Substance: ROFLUMILAST
  22. SERTRALINE [Concomitant]
     Active Substance: SERTRALINE HYDROCHLORIDE
  23. VASCEPA [Concomitant]
     Active Substance: ICOSAPENT ETHYL
  24. VERAPAMIL [Concomitant]
     Active Substance: VERAPAMIL HYDROCHLORIDE

REACTIONS (2)
  - Memory impairment [Recovered/Resolved]
  - Product dose omission issue [Recovered/Resolved]

NARRATIVE: CASE EVENT DATE: 20250622
